FAERS Safety Report 8398089-0 (Version None)
Quarter: 2012Q2

REPORT INFORMATION
  Report Type: 
  Country: None (occurrence: None)
  Receive Date: 20120531
  Receipt Date: 20120521
  Transmission Date: 20120825
  Serious: Yes (Hospitalization, Other)
  Sender: FDA-Public Use
  Company Number: DE-ABBOTT-12P-062-0928023-00

PATIENT
  Sex: Female
  Weight: 60 kg

DRUGS (2)
  1. CORTISONE ACETATE [Concomitant]
     Indication: PRODUCT USED FOR UNKNOWN INDICATION
  2. HUMIRA [Suspect]
     Indication: CROHN'S DISEASE
     Route: 058
     Dates: start: 20091209

REACTIONS (10)
  - CROHN'S DISEASE [None]
  - ENTEROSTOMY [None]
  - VOMITING [None]
  - GENERAL PHYSICAL HEALTH DETERIORATION [None]
  - DIARRHOEA [None]
  - PYREXIA [None]
  - ANAL STENOSIS [None]
  - PROCTOCOLECTOMY [None]
  - STRESS CARDIOMYOPATHY [None]
  - ABDOMINAL PAIN [None]
